FAERS Safety Report 15810393 (Version 1)
Quarter: 2019Q1

REPORT INFORMATION
  Report Type: Spontaneous
  Country: US (occurrence: US)
  Receive Date: 20190111
  Receipt Date: 20190111
  Transmission Date: 20190417
  Serious: No
  Sender: FDA-Public Use
  Company Number: US-ROCHE-2211648

PATIENT
  Age: 68 Year
  Sex: Female

DRUGS (5)
  1. BENADRYL + DYCLONE MOUTHRINSE [Suspect]
     Active Substance: DIPHENHYDRAMINE HYDROCHLORIDE\DYCLONINE HYDROCHLORIDE
     Indication: PRODUCT USED FOR UNKNOWN INDICATION
     Dosage: ONGOING: UNKNOWN
     Route: 065
  2. RITUXAN [Suspect]
     Active Substance: RITUXIMAB
     Indication: RHEUMATOID ARTHRITIS
     Dosage: ONGOING: UNKNOWN
     Route: 065
     Dates: start: 20181102
  3. PHENERGAN [Concomitant]
     Active Substance: PROMETHAZINE HYDROCHLORIDE
     Dosage: ONGOING: UNKNOWN
     Route: 065
  4. CLONIDINE. [Concomitant]
     Active Substance: CLONIDINE
     Dosage: ONGOING: UNKNOWN
     Route: 065
  5. TYLENOL [Concomitant]
     Active Substance: ACETAMINOPHEN
     Dosage: ONGOING: UNKNOWN
     Route: 065

REACTIONS (6)
  - Nausea [Unknown]
  - Affect lability [Unknown]
  - Throat irritation [Unknown]
  - Fatigue [Unknown]
  - Headache [Unknown]
  - Feeling abnormal [Unknown]

NARRATIVE: CASE EVENT DATE: 20181102
